FAERS Safety Report 6425584-3 (Version None)
Quarter: 2009Q4

REPORT INFORMATION
  Report Type: 
  Country: None (occurrence: None)
  Receive Date: 20091103
  Receipt Date: 20090306
  Transmission Date: 20100525
  Serious: Yes (Life-Threatening, Other)
  Sender: FDA-Public Use
  Company Number: GB-BAXTER-2009BH000006

PATIENT
  Sex: Male

DRUGS (6)
  1. LACTATED RINGER'S [Suspect]
     Indication: DRUG USE FOR UNKNOWN INDICATION
     Route: 042
     Dates: start: 20081229, end: 20081229
  2. PHENYLEPHRINE [Concomitant]
     Route: 042
     Dates: start: 20081229
  3. ADRENALINE [Concomitant]
     Route: 042
     Dates: start: 20081229
  4. REMIFENTANIL [Concomitant]
     Route: 042
     Dates: start: 20081229
  5. ROCURONIUM BROMIDE [Concomitant]
     Route: 042
     Dates: start: 20081229
  6. PROPOFOL [Concomitant]
     Dates: start: 20081229

REACTIONS (2)
  - BLOOD PRESSURE DECREASED [None]
  - HYPERSENSITIVITY [None]
